FAERS Safety Report 14621090 (Version 1)
Quarter: 2018Q1

REPORT INFORMATION
  Report Type: Report from Study
  Country: None (occurrence: GB)
  Receive Date: 20180310
  Receipt Date: 20180310
  Transmission Date: 20180509
  Serious: Yes (Other)
  Sender: FDA-Public Use
  Company Number: GB-ABBVIE-18K-167-2277265-00

PATIENT
  Sex: Female

DRUGS (2)
  1. HUMIRA [Suspect]
     Active Substance: ADALIMUMAB
     Indication: COLITIS ULCERATIVE
     Route: 058
     Dates: start: 201612, end: 201704
  2. IRON [Concomitant]
     Active Substance: IRON
     Indication: PRODUCT USED FOR UNKNOWN INDICATION

REACTIONS (6)
  - Scar [Not Recovered/Not Resolved]
  - Pruritus [Recovered/Resolved]
  - Injection site rash [Recovering/Resolving]
  - Intestinal haemorrhage [Not Recovered/Not Resolved]
  - Rash generalised [Recovering/Resolving]
  - Drug ineffective [Unknown]
